FAERS Safety Report 22540342 (Version 1)
Quarter: 2023Q2

REPORT INFORMATION
  Report Type: Other
  Country: CH (occurrence: None)
  Receive Date: 20230609
  Receipt Date: 20230609
  Transmission Date: 20230722
  Serious: Yes (Hospitalization)
  Sender: FDA-Public Use
  Company Number: CH-ROCHE-3364912

PATIENT
  Age: 57 Year
  Sex: Female

DRUGS (10)
  1. ATEZOLIZUMAB [Suspect]
     Active Substance: ATEZOLIZUMAB
     Indication: Lung adenocarcinoma
     Route: 065
     Dates: start: 2018
  2. CARBOPLATIN [Suspect]
     Active Substance: CARBOPLATIN
     Indication: Lung adenocarcinoma
     Route: 065
     Dates: start: 2018
  3. PACLITAXEL [Suspect]
     Active Substance: PACLITAXEL
     Indication: Lung adenocarcinoma
     Route: 065
     Dates: start: 2018
  4. BEVACIZUMAB [Suspect]
     Active Substance: BEVACIZUMAB
     Indication: Lung adenocarcinoma
     Route: 065
     Dates: start: 2018
  5. CISPLATIN [Concomitant]
     Active Substance: CISPLATIN
  6. PEMETREXED [Concomitant]
     Active Substance: PEMETREXED
  7. VEMURAFENIB [Concomitant]
     Active Substance: VEMURAFENIB
  8. GEMCITABINE [Concomitant]
     Active Substance: GEMCITABINE
  9. DABRAFENIB [Concomitant]
     Active Substance: DABRAFENIB
  10. TRAMETINIB [Concomitant]
     Active Substance: TRAMETINIB

REACTIONS (2)
  - Eye infection toxoplasmal [Unknown]
  - Disease progression [Unknown]
